FAERS Safety Report 20845376 (Version 3)
Quarter: 2022Q3

REPORT INFORMATION
  Report Type: Spontaneous
  Country: US (occurrence: US)
  Receive Date: 20220518
  Receipt Date: 20220915
  Transmission Date: 20221027
  Serious: Yes (Other)
  Sender: FDA-Public Use
  Company Number: US-PFIZER INC-202200703002

PATIENT
  Age: 21 Year
  Sex: Female

DRUGS (1)
  1. XELJANZ XR [Suspect]
     Active Substance: TOFACITINIB CITRATE
     Indication: Rheumatoid arthritis
     Dosage: 11 MG, ONCE DAILY (TAKE 1 TABLET(S) EVERY DAY BY ORAL ROUTE)
     Route: 048
     Dates: start: 20220527

REACTIONS (7)
  - Tuberculosis [Unknown]
  - Product dose omission issue [Unknown]
  - Therapeutic response unexpected [Recovering/Resolving]
  - Headache [Recovered/Resolved]
  - Arthralgia [Recovering/Resolving]
  - Swelling [Recovering/Resolving]
  - Arthritis [Recovering/Resolving]
